FAERS Safety Report 19714529 (Version 1)
Quarter: 2021Q3

REPORT INFORMATION
  Report Type: Spontaneous
  Country: US (occurrence: US)
  Receive Date: 20210818
  Receipt Date: 20210818
  Transmission Date: 20211014
  Serious: Yes (Other)
  Sender: FDA-Public Use
  Company Number: US-SA-2021SA272084

PATIENT
  Age: 12 Year
  Sex: Male

DRUGS (1)
  1. DUPIXENT [Suspect]
     Active Substance: DUPILUMAB
     Indication: NEURODERMATITIS
     Dosage: 200 MG, QOW
     Route: 058
     Dates: start: 202105, end: 2021

REACTIONS (2)
  - Crohn^s disease [Unknown]
  - Eczema [Unknown]

NARRATIVE: CASE EVENT DATE: 2021
